FAERS Safety Report 22256012 (Version 1)
Quarter: 2023Q2

REPORT INFORMATION
  Report Type: Spontaneous
  Country: CN (occurrence: None)
  Receive Date: 20230426
  Receipt Date: 20230426
  Transmission Date: 20230721
  Serious: Yes (Hospitalization, Other)
  Sender: FDA-Public Use
  Company Number: 2023A091845

PATIENT
  Age: 16643 Day
  Sex: Male
  Weight: 75 kg

DRUGS (2)
  1. BUDESONIDE\FORMOTEROL FUMARATE [Suspect]
     Active Substance: BUDESONIDE\FORMOTEROL FUMARATE
     Indication: Asthma
     Route: 055
     Dates: start: 20230305, end: 20230306
  2. MONTELUKAST SODIUM [Concomitant]
     Active Substance: MONTELUKAST SODIUM
     Indication: Rhinitis allergic
     Route: 048
     Dates: start: 20230305, end: 20230306

REACTIONS (15)
  - Pyrexia [Recovering/Resolving]
  - Hepatic function abnormal [Recovering/Resolving]
  - Asthenia [Unknown]
  - White blood cell count increased [Unknown]
  - C-reactive protein increased [Unknown]
  - Exfoliative rash [Unknown]
  - Headache [Unknown]
  - Erythema [Unknown]
  - Infection [Unknown]
  - Localised oedema [Recovering/Resolving]
  - Rash [Recovering/Resolving]
  - Face oedema [Recovering/Resolving]
  - Pruritus [Recovering/Resolving]
  - Drug hypersensitivity [Unknown]
  - Feeling hot [Recovering/Resolving]

NARRATIVE: CASE EVENT DATE: 20230313
